FAERS Safety Report 24890487 (Version 1)
Quarter: 2025Q1

REPORT INFORMATION
  Report Type: Other
  Country: PL (occurrence: PL)
  Receive Date: 20250127
  Receipt Date: 20250127
  Transmission Date: 20250408
  Serious: Yes (Hospitalization, Other)
  Sender: BIOCON
  Company Number: None

PATIENT

DRUGS (7)
  1. INSULIN GLARGINE [Suspect]
     Active Substance: INSULIN GLARGINE
     Indication: Muscle hypertrophy
     Dosage: 40 INTERNATIONAL UNIT, QD (40 IU DAILY FOR 10 YEARS (1 UNIT TO COVER 10G OF GLUCOSE)
     Route: 065
  2. TRENBOLONE ENANTHATE [Suspect]
     Active Substance: TRENBOLONE ENANTHATE
     Indication: Muscle hypertrophy
     Route: 048
  3. TESTOSTERONE UNDECANOATE [Suspect]
     Active Substance: TESTOSTERONE UNDECANOATE
     Indication: Muscle hypertrophy
     Dosage: 750 MILLIGRAM, QWEEK
     Route: 065
  4. LERCANIDIPINE [Suspect]
     Active Substance: LERCANIDIPINE
     Indication: Product used for unknown indication
     Route: 065
  5. TESTOSTERONE [Suspect]
     Active Substance: TESTOSTERONE
     Indication: Product used for unknown indication
     Route: 030
  6. TRENBOLONE ENANTHATE [Suspect]
     Active Substance: TRENBOLONE ENANTHATE
     Indication: Muscle hypertrophy
     Route: 030
  7. RAMIPRIL [Concomitant]
     Active Substance: RAMIPRIL
     Indication: Product used for unknown indication
     Route: 065

REACTIONS (10)
  - Focal segmental glomerulosclerosis [Recovered/Resolved]
  - Product use in unapproved indication [Unknown]
  - Blood cholesterol increased [Recovered/Resolved]
  - Haematuria [Recovered/Resolved]
  - Hypoglycaemia [Recovered/Resolved]
  - Intentional product misuse [Recovered/Resolved]
  - Blood creatinine increased [Recovered/Resolved]
  - Proteinuria [Recovered/Resolved]
  - Hypertension [Recovered/Resolved]
  - Drug abuse [Unknown]
